FAERS Safety Report 5779969-9 (Version None)
Quarter: 2008Q2

REPORT INFORMATION
  Report Type: 
  Country: None (occurrence: None)
  Receive Date: 20080620
  Receipt Date: 20080610
  Transmission Date: 20081010
  Serious: No
  Sender: FDA-Public Use
  Company Number: US-JNJFOC-20080602985

PATIENT
  Age: 38 Year
  Sex: Male

DRUGS (4)
  1. INVEGA [Suspect]
     Indication: DISTURBANCE IN ATTENTION
     Route: 048
  2. ZOLOFT [Concomitant]
     Indication: DEPRESSION
  3. XANAX [Concomitant]
     Indication: ANXIETY
  4. KLONOPIN [Concomitant]
     Indication: DEPRESSION

REACTIONS (1)
  - AGITATION [None]
